FAERS Safety Report 7208526-2 (Version None)
Quarter: 2011Q1

REPORT INFORMATION
  Report Type: 
  Country: None (occurrence: None)
  Receive Date: 20110104
  Receipt Date: 20101123
  Transmission Date: 20110831
  Serious: Yes (Hospitalization, Other)
  Sender: FDA-Public Use
  Company Number: US-BAYER-201024388NA

PATIENT
  Sex: Female
  Weight: 113.38 kg

DRUGS (5)
  1. YASMIN [Suspect]
     Indication: ORAL CONTRACEPTION
     Dosage: UNK
     Route: 048
     Dates: start: 20020801, end: 20020901
  2. YASMIN [Suspect]
     Indication: POLYCYSTIC OVARIES
  3. YASMIN [Suspect]
  4. YASMIN [Suspect]
     Indication: PREMENSTRUAL SYNDROME
  5. YASMIN [Suspect]
     Indication: ACNE
     Dosage: UNK
     Dates: start: 20081001, end: 20090501

REACTIONS (8)
  - NAUSEA [None]
  - HYPERAMYLASAEMIA [None]
  - VOMITING [None]
  - CHOLELITHIASIS [None]
  - ABDOMINAL PAIN [None]
  - CHOLECYSTITIS [None]
  - PANCREATITIS [None]
  - GALLBLADDER CHOLESTEROLOSIS [None]
